FAERS Safety Report 20542974 (Version 1)
Quarter: 2022Q1

REPORT INFORMATION
  Report Type: Spontaneous
  Country: None (occurrence: US)
  Receive Date: 20220302
  Receipt Date: 20220302
  Transmission Date: 20220424
  Serious: No
  Sender: FDA-Public Use
  Company Number: US-Breckenridge Pharmaceutical, Inc.-2126382

PATIENT
  Age: 88 Year
  Sex: Female
  Weight: 59.091 kg

DRUGS (6)
  1. RIVASTIGMINE TRANSDERMAL SYSTEM [Suspect]
     Active Substance: RIVASTIGMINE
     Indication: Amnesia
     Route: 062
  2. WARFARIN SODIUM [Concomitant]
     Active Substance: WARFARIN SODIUM
  3. LEVOTHYROXINE [Concomitant]
     Active Substance: LEVOTHYROXINE
  4. DULOXETINE [Concomitant]
     Active Substance: DULOXETINE
  5. LOSARTAN [Concomitant]
     Active Substance: LOSARTAN
  6. Unspecified OTC supplements [Concomitant]

REACTIONS (1)
  - Nightmare [Not Recovered/Not Resolved]
